FAERS Safety Report 5006846-3 (Version None)
Quarter: 2006Q2

REPORT INFORMATION
  Report Type: 
  Country: None (occurrence: None)
  Receive Date: 20060519
  Receipt Date: 20060505
  Transmission Date: 20061013
  Serious: Yes (Other)
  Sender: FDA-Public Use
  Company Number: PT-GLAXOSMITHKLINE-B0424175A

PATIENT
  Age: 42 Year
  Sex: Female
  Weight: 59 kg

DRUGS (1)
  1. NIQUITIN CQ 21MG [Suspect]
     Dosage: 21MG PER DAY
     Route: 062
     Dates: start: 20060105

REACTIONS (1)
  - OLIGOMENORRHOEA [None]
